FAERS Safety Report 6283648-1 (Version None)
Quarter: 2009Q3

REPORT INFORMATION
  Report Type: 
  Country: None (occurrence: None)
  Receive Date: 20090724
  Receipt Date: 20090715
  Transmission Date: 20100115
  Serious: Yes (Hospitalization, Other)
  Sender: FDA-Public Use
  Company Number: PHHY2009FR29432

PATIENT
  Sex: Male

DRUGS (4)
  1. TEGRETOL-XR [Suspect]
     Indication: PARTIAL SEIZURES
     Dosage: 400MG 2 DAILY
     Route: 048
     Dates: end: 20090504
  2. NORVIR [Suspect]
     Indication: HIV INFECTION
     Dosage: 1 DF, QD
     Route: 048
  3. TRUVADA [Suspect]
     Indication: HIV INFECTION
     Route: 048
  4. REYATAZ [Suspect]
     Indication: HIV INFECTION
     Dosage: 1 DF, BID
     Route: 048

REACTIONS (14)
  - ANTICONVULSANT DRUG LEVEL ABOVE THERAPEUTIC [None]
  - APHASIA [None]
  - CEREBELLAR SYNDROME [None]
  - CYTOLYTIC HEPATITIS [None]
  - DIPLOPIA [None]
  - DYSARTHRIA [None]
  - FEELING DRUNK [None]
  - GAIT DISTURBANCE [None]
  - HEPATITIS C [None]
  - HEPATOSPLENOMEGALY [None]
  - JAUNDICE CHOLESTATIC [None]
  - MOTOR DYSFUNCTION [None]
  - OVERDOSE [None]
  - SOMNOLENCE [None]
